FAERS Safety Report 4974060-3 (Version None)
Quarter: 2006Q2

REPORT INFORMATION
  Report Type: 
  Country: None (occurrence: None)
  Receive Date: 20060417
  Receipt Date: 20060209
  Transmission Date: 20061013
  Serious: Yes (Other)
  Sender: FDA-Public Use
  Company Number: US-GLAXOSMITHKLINE-A0593284A

PATIENT
  Age: 34 Year
  Sex: Female

DRUGS (1)
  1. WELLBUTRIN XL [Suspect]
     Indication: BIPOLAR II DISORDER
     Route: 048
     Dates: start: 20050819, end: 20060209

REACTIONS (4)
  - FOAMING AT MOUTH [None]
  - MYOCLONIC EPILEPSY [None]
  - POSTICTAL STATE [None]
  - ROAD TRAFFIC ACCIDENT [None]
